FAERS Safety Report 11037362 (Version 1)
Quarter: 2015Q2

REPORT INFORMATION
  Report Type: Spontaneous
  Country: IT (occurrence: None)
  Receive Date: 20150414
  Receipt Date: 20150414
  Transmission Date: 20150821
  Serious: Yes (Hospitalization)
  Sender: FDA-Public Use
  Company Number: DEP_02657_2015

PATIENT
  Sex: Female

DRUGS (1)
  1. PECFENT [Suspect]
     Active Substance: FENTANYL CITRATE
     Indication: PRODUCT USED FOR UNKNOWN INDICATION
     Dosage: (100 MCG/ 1 BOTTLE, DF)

REACTIONS (2)
  - Presyncope [None]
  - Hyponatraemia [None]

NARRATIVE: CASE EVENT DATE: 20140710
